FAERS Safety Report 23079301 (Version 3)
Quarter: 2023Q4

REPORT INFORMATION
  Report Type: Spontaneous
  Country: CA (occurrence: CA)
  Receive Date: 20231018
  Receipt Date: 20231214
  Transmission Date: 20240109
  Serious: Yes (Hospitalization)
  Sender: FDA-Public Use
  Company Number: CA-PFIZER INC-202300311798

PATIENT
  Age: 62 Year
  Sex: Female

DRUGS (3)
  1. RUXIENCE [Suspect]
     Active Substance: RITUXIMAB-PVVR
     Indication: Granulomatosis with polyangiitis
     Dosage: 1 DF, 1 UNKNOWN DOSE EVERY WEEK X 4 WEEKS
     Route: 042
     Dates: start: 20221006, end: 20221027
  2. RUXIENCE [Suspect]
     Active Substance: RITUXIMAB-PVVR
     Indication: Microscopic polyangiitis
     Dosage: 1 DF, 1 UNKNOWN DOSE EVERY WEEK X 4 WEEKS
     Route: 042
     Dates: start: 20221027
  3. PREDNISONE [Concomitant]
     Active Substance: PREDNISONE
     Dosage: UNK

REACTIONS (2)
  - Gait inability [Recovered/Resolved]
  - Off label use [Unknown]
